FAERS Safety Report 7752062-1 (Version None)
Quarter: 2011Q3

REPORT INFORMATION
  Report Type: 
  Country: None (occurrence: None)
  Receive Date: 20110913
  Receipt Date: 20110901
  Transmission Date: 20111222
  Serious: Yes (Other)
  Sender: FDA-Public Use
  Company Number: DSA_47131_2011

PATIENT
  Age: 72 Year
  Sex: Male

DRUGS (13)
  1. WARFARIN SODIUM [Concomitant]
  2. CHOLECALCIFEROL [Concomitant]
  3. FOLIC ACID [Concomitant]
  4. AZATHIOPRINE [Concomitant]
  5. CARDIZEM CD [Suspect]
     Indication: ARRHYTHMIA
     Dosage: 120 MG QD ORAL
     Route: 048
     Dates: start: 20110504, end: 20110527
  6. COLCHICINE [Concomitant]
  7. ALENDRONATE SODIUM [Concomitant]
  8. BENZBROMARONE [Concomitant]
  9. THIAMINE HCL [Concomitant]
  10. FUROSEMIDE [Concomitant]
  11. BETALOC [Concomitant]
  12. PREDNISONE [Concomitant]
  13. DIGOXIN [Concomitant]

REACTIONS (3)
  - CONFUSIONAL STATE [None]
  - AMNESIA [None]
  - HALLUCINATION [None]
